FAERS Safety Report 7316075-6 (Version None)
Quarter: 2011Q1

REPORT INFORMATION
  Report Type: 
  Country: None (occurrence: None)
  Receive Date: 20110225
  Receipt Date: 20110216
  Transmission Date: 20110831
  Serious: Yes (Other)
  Sender: FDA-Public Use
  Company Number: CA-JNJFOC-20110206002

PATIENT
  Sex: Male
  Weight: 76.6 kg

DRUGS (3)
  1. REMICADE [Suspect]
     Indication: CROHN'S DISEASE
     Route: 042
  2. CELEXA [Concomitant]
  3. CLONAZEPAM [Concomitant]

REACTIONS (1)
  - FISTULA [None]
